FAERS Safety Report 4416614-9 (Version None)
Quarter: 2004Q3

REPORT INFORMATION
  Report Type: 
  Country: None (occurrence: None)
  Receive Date: 20040802
  Receipt Date: 20040719
  Transmission Date: 20050211
  Serious: Yes (Death, Life-Threatening, Hospitalization, Other)
  Sender: FDA-Public Use
  Company Number: 2004049222

PATIENT
  Age: 42 Year
  Sex: Female

DRUGS (14)
  1. FLUCONAZOLE [Suspect]
     Indication: ILL-DEFINED DISORDER
     Dosage: 200 MG (1 D), INTRAVENOUS
     Route: 042
  2. LEVOFLOXACIN [Suspect]
     Indication: ILL-DEFINED DISORDER
     Dosage: 500 MG (1 D), INTRAVENOUS; 500 MG (1 D), ORAL
     Route: 042
  3. ITRACONAZOLE [Suspect]
     Indication: ILL-DEFINED DISORDER
  4. TACROLIMUS (TACROLIMUS) [Suspect]
     Indication: ILL-DEFINED DISORDER
     Dosage: (1 D),  INTRAVENOUS
     Route: 042
  5. MYCOPHENOLATE MOFETIL (MYCOPHENOLATE MOFETIL) [Concomitant]
  6. METHYLPREDNISOLONE [Concomitant]
  7. CEFUROXIME [Concomitant]
  8. NYSTATIN [Concomitant]
  9. BACTRIM [Concomitant]
  10. GANCICLOVIR (GANCLCLOVIR) [Concomitant]
  11. TOBRAMYCIN [Concomitant]
  12. ANTITHYMOCYTE IMMUNOGLOBULIN (ANTITHYMOCYTE  IMMUNOGLOBULIN) [Concomitant]
  13. SIROLIMUS (SIROLIMUS) [Concomitant]
  14. ALL OTHER THERAPEUTIC PRODUCTS [Concomitant]

REACTIONS (6)
  - DRUG INTERACTION [None]
  - DRUG LEVEL INCREASED [None]
  - ELECTROCARDIOGRAM QT CORRECTED INTERVAL PROLONGED [None]
  - MULTI-ORGAN FAILURE [None]
  - PNEUMONIA [None]
  - TRANSPLANT REJECTION [None]
